FAERS Safety Report 25124460 (Version 3)
Quarter: 2025Q3

REPORT INFORMATION
  Report Type: Spontaneous
  Country: JP (occurrence: JP)
  Receive Date: 20250326
  Receipt Date: 20250808
  Transmission Date: 20251021
  Serious: Yes (Life-Threatening, Hospitalization, Other)
  Sender: PFIZER
  Company Number: JP-PFIZER INC-PV202500025346

PATIENT
  Age: 73 Year
  Sex: Male
  Weight: 64.4 kg

DRUGS (25)
  1. ELREXFIO [Suspect]
     Active Substance: ELRANATAMAB-BCMM
     Indication: Plasma cell myeloma refractory
     Route: 058
     Dates: start: 20240916, end: 20240916
  2. ELREXFIO [Suspect]
     Active Substance: ELRANATAMAB-BCMM
     Route: 058
     Dates: start: 20240919, end: 20240919
  3. ELREXFIO [Suspect]
     Active Substance: ELRANATAMAB-BCMM
     Route: 058
     Dates: start: 20240923, end: 20240923
  4. ELREXFIO [Suspect]
     Active Substance: ELRANATAMAB-BCMM
     Dosage: 76 MG, WEEKLY (EVERY WEDNESDAY(ON 02OCT, 09OCT AND 16OCT))
     Route: 058
     Dates: start: 20241002, end: 20241016
  5. EZETIMIBE [Concomitant]
     Active Substance: EZETIMIBE
     Indication: Hyperlipidaemia
     Dosage: 1 DF, 1X/DAY, 1-0-0
  6. POTASSIUM ASPARTATE [Concomitant]
     Active Substance: POTASSIUM ASPARTATE
     Indication: Blood potassium decreased
     Dosage: 300 MG, 2X/DAY, AFTER BREAKFAST AND DINNER
  7. ESOMEPRAZOLE NIPRO [Concomitant]
     Dosage: 20 MG, 1X/DAY, AFTER BREAKFAST
  8. TOARASET TOWA [Concomitant]
     Indication: Back pain
     Dosage: 1 DF, 4X/DAY, AFTER EVERY MEAL AND BEFORE SLEEPING
  9. ACYCLOVIR [Concomitant]
     Active Substance: ACYCLOVIR
     Indication: Prophylaxis
     Dosage: 200 MG, 1X/DAY, AFTER BREAKFAST
  10. PREDNISOLONE [Concomitant]
     Active Substance: PREDNISOLONE
     Dosage: 5 MG, 1X/DAY, AFTER BREAKFAST
  11. SILODOSIN OD DSEP [Concomitant]
     Indication: Benign prostatic hyperplasia
     Dosage: 4 MG, 2X/DAY, AFTER BREAKFAST AND DINNER
  12. DOCONEXENT\ICOSAPENT [Concomitant]
     Active Substance: DOCONEXENT\ICOSAPENT
     Dosage: 2 G, 1X/DAY, JUST AFTER BREAKFAST
  13. LOSARTAN [Concomitant]
     Active Substance: LOSARTAN
     Indication: Hypertension
     Dosage: 25 MG, 1X/DAY, AFTER DINNER
  14. NOXAFIL [Concomitant]
     Active Substance: POSACONAZOLE
     Dosage: 300 MG, 1X/DAY, AFTER BREAKFAST
  15. LEVOFLOXACIN [Concomitant]
     Active Substance: LEVOFLOXACIN
     Dosage: 500 MG, 1X/DAY, AFTER BREAKFAST
  16. ICOSAPENT ETHYL [Concomitant]
     Active Substance: ICOSAPENT ETHYL
     Indication: Lipids abnormal
  17. CELECOXIB [Concomitant]
     Active Substance: CELECOXIB
     Indication: Back pain
     Dosage: 100 MG, 2X/DAY, MORNING AND DINNER
  18. HERBALS [Concomitant]
     Active Substance: HERBALS
     Dosage: 2.5 G, 3X/DAY, 1-1-1
  19. REPAGLINIDE [Concomitant]
     Active Substance: REPAGLINIDE
     Indication: Diabetes mellitus
     Dosage: 1 DF, 2X/DAY, 0-1-1
  20. DAPAGLIFLOZIN [Concomitant]
     Active Substance: DAPAGLIFLOZIN
     Indication: Diabetes mellitus
     Dosage: 5 MG, 1X/DAY, 1-0-0
  21. LINAGLIPTIN [Concomitant]
     Active Substance: LINAGLIPTIN
     Indication: Diabetes mellitus
     Dosage: 1 DF, 1X/DAY,1-0-0
  22. ALLOPURINOL [Concomitant]
     Active Substance: ALLOPURINOL
     Indication: Hyperuricaemia
     Dosage: 2 DF, 1X/DAY, 2-0-0
  23. HERBESSER [Concomitant]
     Active Substance: DILTIAZEM HYDROCHLORIDE
     Indication: Hypertension
     Dosage: 1 DF, 1X/DAY, 0-0-1
  24. BISOPROLOL [Concomitant]
     Active Substance: BISOPROLOL
     Indication: Cardiac failure
     Dosage: 1 DF, 1X/DAY, 1-0-0
  25. TORSEMIDE [Concomitant]
     Active Substance: TORSEMIDE
     Indication: Cardiac failure
     Dosage: 1 DF, 1X/DAY, 1-0-0

REACTIONS (5)
  - Pancytopenia [Not Recovered/Not Resolved]
  - Cytomegalovirus infection [Recovered/Resolved]
  - Pneumonia [Recovered/Resolved]
  - Neutrophil count decreased [Recovered/Resolved]
  - Cytomegalovirus viraemia [Unknown]

NARRATIVE: CASE EVENT DATE: 20241022
